FAERS Safety Report 8325261-8 (Version None)
Quarter: 2012Q2

REPORT INFORMATION
  Report Type: 
  Country: None (occurrence: None)
  Receive Date: 20120427
  Receipt Date: 20120420
  Transmission Date: 20120825
  Serious: Yes (Other)
  Sender: FDA-Public Use
  Company Number: TCI2012A02105

PATIENT

DRUGS (1)
  1. ROZEREM [Suspect]
     Indication: PRODUCT USED FOR UNKNOWN INDICATION
     Dosage: 8 MG (8 MG, 1 IN 1 D), PER ORAL
     Route: 048

REACTIONS (1)
  - CONVULSION [None]
